FAERS Safety Report 4437445-X (Version None)
Quarter: 2004Q3

REPORT INFORMATION
  Report Type: 
  Country: None (occurrence: None)
  Receive Date: 20040830
  Receipt Date: 20040823
  Transmission Date: 20050211
  Serious: Yes (Other)
  Sender: FDA-Public Use
  Company Number: JP-MERCK-0408USA02059

PATIENT
  Age: 50 Year
  Sex: Male

DRUGS (2)
  1. PEPCID RPD [Suspect]
     Route: 048
     Dates: start: 20040716, end: 20040730
  2. MUCOSTA [Concomitant]
     Route: 048
     Dates: start: 20040716, end: 20040730

REACTIONS (1)
  - DEAFNESS UNILATERAL [None]
